FAERS Safety Report 24878565 (Version 1)
Quarter: 2025Q1

REPORT INFORMATION
  Report Type: Spontaneous
  Country: US (occurrence: US)
  Receive Date: 20250123
  Receipt Date: 20250123
  Transmission Date: 20250409
  Serious: Yes (Hospitalization, Other)
  Sender: PFIZER
  Company Number: US-PFIZER INC-PV202500008059

PATIENT
  Age: 14 Year
  Sex: Female
  Weight: 57.19 kg

DRUGS (10)
  1. MEDROL [Suspect]
     Active Substance: METHYLPREDNISOLONE
  2. PREDNISONE [Suspect]
     Active Substance: PREDNISONE
  3. JAKAFI [Suspect]
     Active Substance: RUXOLITINIB
     Indication: Juvenile idiopathic arthritis
     Dosage: 5MG TABLETS BID (TWICE A DAY) (UPTITRATING DOSES)
     Route: 048
     Dates: start: 20230917, end: 2024
  4. JAKAFI [Suspect]
     Active Substance: RUXOLITINIB
     Indication: Still^s disease
     Dosage: 5MG TABLETS BID (TWICE A DAY) (UPTITRATING DOSES)
     Route: 048
     Dates: start: 20230917, end: 2024
  5. JAKAFI [Suspect]
     Active Substance: RUXOLITINIB
     Dosage: 5MG TABLETS BID (TWICE A DAY) (UPTITRATING DOSES)
     Route: 048
     Dates: start: 20230917, end: 2024
  6. JAKAFI [Suspect]
     Active Substance: RUXOLITINIB
     Dosage: 25UNK BID (TWICE A DAY)
     Route: 048
     Dates: start: 202406
  7. LUPKYNIS [Interacting]
     Active Substance: VOCLOSPORIN
     Indication: Juvenile idiopathic arthritis
     Dosage: 23.7MG BID (TWICE A DAY)
     Route: 048
     Dates: start: 20231011
  8. CYCLOSPORINE [Interacting]
     Active Substance: CYCLOSPORINE
     Dosage: 100MG BID (TWICE A DAY)
     Dates: start: 202310
  9. HYDROCORTISONE [Concomitant]
     Active Substance: HYDROCORTISONE
     Dosage: 40-100MG BID (TWICE A DAY)
  10. VORICONAZOLE [Concomitant]
     Active Substance: VORICONAZOLE

REACTIONS (23)
  - Dizziness [Unknown]
  - Haemophagocytic lymphohistiocytosis [Unknown]
  - Hallucination [Recovered/Resolved]
  - Still^s disease [Not Recovered/Not Resolved]
  - Condition aggravated [Not Recovered/Not Resolved]
  - Hypersensitivity [Recovered/Resolved]
  - Off label use [Unknown]
  - Stress [Unknown]
  - Depression [Unknown]
  - Diarrhoea [Unknown]
  - Constipation [Unknown]
  - Pollakiuria [Unknown]
  - Fatigue [Unknown]
  - Dyspnoea exertional [Unknown]
  - Emotional disorder [Unknown]
  - Nausea [Unknown]
  - Vomiting [Unknown]
  - Sinus disorder [Unknown]
  - Mental status changes [Recovered/Resolved]
  - Therapeutic product effect variable [Unknown]
  - Drug interaction [Unknown]
  - Arthritis [Unknown]
  - Condition aggravated [Unknown]

NARRATIVE: CASE EVENT DATE: 20230901
